FAERS Safety Report 9099705 (Version 2)
Quarter: 2013Q4

REPORT INFORMATION
  Report Type: Report from Study
  Country: GB (occurrence: GB)
  Receive Date: 20130214
  Receipt Date: 20131114
  Transmission Date: 20140711
  Serious: Yes (Hospitalization)
  Sender: FDA-Public Use
  Company Number: GB-ROCHE-1186637

PATIENT
  Age: 50 Year
  Sex: Female
  Weight: 87.8 kg

DRUGS (3)
  1. TRASTUZUMAB [Suspect]
     Indication: BREAST CANCER
     Dosage: DOSAGE FORM: 8 MG/KG
     Route: 042
     Dates: start: 20130114
  2. DOCETAXEL [Suspect]
     Indication: BREAST CANCER
     Route: 042
  3. PLACEBO [Suspect]
     Indication: BREAST CANCER
     Route: 042
     Dates: start: 20130114

REACTIONS (1)
  - Lower respiratory tract infection [Recovered/Resolved]
